FAERS Safety Report 6356149 (Version 2)
Quarter: 2018Q2

REPORT INFORMATION
  Report Type: Spontaneous
  Country: HR (occurrence: HR)
  Receive Date: 20070706
  Receipt Date: 20180622
  Transmission Date: 20180711
  Serious: Yes (Death, Hospitalization)
  Sender: FDA-Public Use
  Company Number: GXKR2007HR05456

PATIENT
  Age: 44 Year
  Sex: Male
  Weight: 75 kg

DRUGS (22)
  1. ALPRAZOLAM. [Concomitant]
     Active Substance: ALPRAZOLAM
     Indication: ANXIETY
  2. PAROXETINE. [Interacting]
     Active Substance: PAROXETINE
     Indication: MENTAL DISORDER
  3. BIPERIDEN [Concomitant]
     Active Substance: BIPERIDEN
     Indication: MENTAL DISORDER
  4. DIAZEPAM. [Concomitant]
     Active Substance: DIAZEPAM
     Indication: MENTAL DISORDER
     Dosage: 30 MG, QD
     Route: 048
  5. DIAZEPAM. [Concomitant]
     Active Substance: DIAZEPAM
     Indication: SCHIZOPHRENIA
  6. BIPERIDEN [Concomitant]
     Active Substance: BIPERIDEN
     Indication: MENTAL DISORDER
     Dosage: 6 MG, QD
     Route: 048
  7. DIAZEPAM. [Concomitant]
     Active Substance: DIAZEPAM
     Indication: INSOMNIA
  8. PAROXETINE. [Interacting]
     Active Substance: PAROXETINE
     Indication: DEPRESSION
  9. FLUPHENAZINE [Suspect]
     Active Substance: FLUPHENAZINE
     Indication: PSYCHOTIC DISORDER
  10. OLANZAPINE. [Interacting]
     Active Substance: OLANZAPINE
     Indication: MENTAL DISORDER
     Dosage: 30 MG, QD
     Route: 048
  11. OLANZAPINE. [Interacting]
     Active Substance: OLANZAPINE
     Indication: SCHIZOPHRENIA
  12. ALPRAZOLAM. [Concomitant]
     Active Substance: ALPRAZOLAM
     Indication: MENTAL DISORDER
     Dosage: 6 MG, QD
     Route: 048
  13. BROMAZEPAM [Concomitant]
     Active Substance: BROMAZEPAM
     Indication: ANXIETY
  14. FLUPHENAZINE [Suspect]
     Active Substance: FLUPHENAZINE
     Indication: SCHIZOPHRENIA
     Dosage: 25 MG, BIW
     Route: 030
  15. ALPRAZOLAM. [Concomitant]
     Active Substance: ALPRAZOLAM
     Indication: MENTAL DISORDER
  16. BROMAZEPAM [Concomitant]
     Active Substance: BROMAZEPAM
     Indication: SCHIZOPHRENIA
     Dosage: 36 MG, QD
     Route: 048
  17. BROMAZEPAM [Concomitant]
     Active Substance: BROMAZEPAM
     Indication: SCHIZOPHRENIA
  18. PAROXETINE. [Interacting]
     Active Substance: PAROXETINE
     Indication: SCHIZOPHRENIA
     Dosage: 20 MG, QD
     Route: 048
  19. FLUPHENAZINE [Suspect]
     Active Substance: FLUPHENAZINE
     Indication: MENTAL DISORDER
     Dosage: 40 MG, QD
     Route: 048
  20. HALOPERIDOL. [Suspect]
     Active Substance: HALOPERIDOL
     Indication: MENTAL DISORDER
     Dosage: 12 MG, QD
     Route: 048
  21. ALPRAZOLAM. [Concomitant]
     Active Substance: ALPRAZOLAM
     Indication: MENTAL DISORDER
  22. DIAZEPAM. [Concomitant]
     Active Substance: DIAZEPAM
     Indication: SCHIZOPHRENIA

REACTIONS (22)
  - Hyponatraemia [Fatal]
  - Pancreatitis haemorrhagic [Fatal]
  - Ketonuria [Fatal]
  - Loss of consciousness [Fatal]
  - Hyperglycaemia [Fatal]
  - Amylase increased [Unknown]
  - Brain oedema [Fatal]
  - Hypotension [Fatal]
  - Disorientation [Unknown]
  - Coma [Unknown]
  - Hypoglycaemia [Fatal]
  - Vertigo [Unknown]
  - Inappropriate antidiuretic hormone secretion [Fatal]
  - Nausea [Unknown]
  - Fatigue [Unknown]
  - Drug interaction [Fatal]
  - Papilloedema [Unknown]
  - Bradypnoea [Fatal]
  - Cardiac arrest [Fatal]
  - Pancreatitis acute [Fatal]
  - Hypopnoea [Unknown]
  - Abdominal pain [Unknown]
